FAERS Safety Report 14333188 (Version 2)
Quarter: 2018Q1

REPORT INFORMATION
  Report Type: Spontaneous
  Country: BR (occurrence: BR)
  Receive Date: 20171228
  Receipt Date: 20180118
  Transmission Date: 20180509
  Serious: No
  Sender: FDA-Public Use
  Company Number: BR-PFIZER INC-2017547957

PATIENT
  Age: 68 Year
  Sex: Female

DRUGS (11)
  1. LIPISTAT [Concomitant]
     Dosage: UNK, ONCE A DAY
     Dates: start: 2014
  2. FRONTAL [Concomitant]
     Active Substance: ALPRAZOLAM
     Indication: DEPRESSION
     Dosage: 2 TABLETS, TWICE A DAY
     Dates: start: 201609
  3. ENALAPRIL [Concomitant]
     Active Substance: ENALAPRIL
     Dosage: 10 MG, TWICE A DAY
     Dates: start: 2014
  4. GLIMEPIRIDE. [Concomitant]
     Active Substance: GLIMEPIRIDE
     Dosage: UNK
     Dates: start: 2014
  5. ASPIRINA PREVENT [Concomitant]
     Active Substance: ASPIRIN
     Dosage: UNK
     Dates: start: 2014
  6. LYRICA [Suspect]
     Active Substance: PREGABALIN
     Indication: CHEST PAIN
     Dosage: 75 MG, EVERY 12 HOURS
     Dates: start: 2014
  7. LOPRESSOR [Concomitant]
     Active Substance: METOPROLOL TARTRATE
     Dosage: UNK, TWICE A DAY
     Dates: start: 2014
  8. SYNTHROID [Concomitant]
     Active Substance: LEVOTHYROXINE SODIUM
     Dosage: UNK
     Dates: start: 2014
  9. LYRICA [Suspect]
     Active Substance: PREGABALIN
     Indication: ANGINA PECTORIS
  10. GLIFAGE XR [Concomitant]
     Active Substance: METFORMIN HYDROCHLORIDE
     Dosage: UNK
     Dates: start: 2014
  11. ARTROLIVE [Concomitant]
     Active Substance: CHONDROITIN SULFATE (BOVINE)\GLUCOSAMINE SULFATE
     Dosage: UNK

REACTIONS (9)
  - Therapeutic response unexpected [Recovered/Resolved]
  - Depressed mood [Recovered/Resolved]
  - Dissociation [Recovered/Resolved]
  - Hypersomnia [Recovered/Resolved]
  - Euphoric mood [Recovered/Resolved]
  - Speech disorder [Recovered/Resolved]
  - Product use in unapproved indication [Not Recovered/Not Resolved]
  - Memory impairment [Recovered/Resolved]
  - Pre-existing condition improved [Recovered/Resolved]

NARRATIVE: CASE EVENT DATE: 2014
